FAERS Safety Report 14848587 (Version 2)
Quarter: 2018Q2

REPORT INFORMATION
  Report Type: Spontaneous
  Country: US (occurrence: US)
  Receive Date: 20180504
  Receipt Date: 20180620
  Transmission Date: 20180711
  Serious: Yes (Death, Life-Threatening, Hospitalization)
  Sender: FDA-Public Use
  Company Number: US-ASTRAZENECA-2018SE58473

PATIENT
  Age: 66 Year
  Sex: Male

DRUGS (29)
  1. NEURONTIN [Concomitant]
     Active Substance: GABAPENTIN
  2. BRILINTA [Suspect]
     Active Substance: TICAGRELOR
     Indication: STENT PLACEMENT
     Dosage: 180.0MG ONCE/SINGLE ADMINISTRATION
     Route: 048
  3. GLUCOSAMINE [Concomitant]
     Active Substance: GLUCOSAMINE
     Dosage: 1500
  4. PRILOSEC [Suspect]
     Active Substance: OMEPRAZOLE MAGNESIUM
     Route: 048
  5. PLAVIX [Concomitant]
     Active Substance: CLOPIDOGREL BISULFATE
  6. DICLOFENAC SODIUM. [Concomitant]
     Active Substance: DICLOFENAC SODIUM
  7. PROSCAR [Concomitant]
     Active Substance: FINASTERIDE
  8. GARCINIA CAMBOGIA [Concomitant]
     Active Substance: HERBALS\GARCINIA CAMBOGIA FRUIT
     Dosage: 500-200 ,MCG
  9. AGGRASTAT [Concomitant]
     Active Substance: TIROFIBAN HYDROCHLORIDE
  10. HEPARIN [Concomitant]
     Active Substance: HEPARIN SODIUM
  11. LIPITOR [Concomitant]
     Active Substance: ATORVASTATIN CALCIUM
  12. DELTASONE [Concomitant]
     Active Substance: PREDNISONE
  13. AUGMENTIN [Concomitant]
     Active Substance: AMOXICILLIN\CLAVULANATE POTASSIUM
     Dosage: 875-125 MG
  14. VITAMIN C [Concomitant]
     Active Substance: ASCORBIC ACID
  15. FLEXERIL [Concomitant]
     Active Substance: CYCLOBENZAPRINE HYDROCHLORIDE
  16. TURMERIC [Concomitant]
     Active Substance: HERBALS\TURMERIC
  17. FERROUS SULFATE. [Concomitant]
     Active Substance: FERROUS SULFATE
  18. CYMBALTA [Concomitant]
     Active Substance: DULOXETINE HYDROCHLORIDE
  19. BETAPACE [Concomitant]
     Active Substance: SOTALOL HYDROCHLORIDE
  20. ZANAFLEX [Concomitant]
     Active Substance: TIZANIDINE HYDROCHLORIDE
  21. FOSAMAX [Concomitant]
     Active Substance: ALENDRONATE SODIUM
  22. BRILINTA [Suspect]
     Active Substance: TICAGRELOR
     Indication: STENT PLACEMENT
     Dosage: 90.0MG UNKNOWN
     Route: 048
  23. FLOMAX [Concomitant]
     Active Substance: TAMSULOSIN HYDROCHLORIDE
  24. OSCAL [Concomitant]
     Active Substance: CALCIUM CARBONATE
  25. NORVASC [Concomitant]
     Active Substance: AMLODIPINE BESYLATE
  26. TOPROL XL [Suspect]
     Active Substance: METOPROLOL SUCCINATE
     Route: 048
  27. ASPIRIN. [Concomitant]
     Active Substance: ASPIRIN
  28. NITROSTAT [Concomitant]
     Active Substance: NITROGLYCERIN
  29. BIOTIN [Concomitant]
     Active Substance: BIOTIN

REACTIONS (4)
  - Ejection fraction decreased [Unknown]
  - Hypertonia [Fatal]
  - Hypoxia [Recovered/Resolved]
  - Cardiac arrest [Fatal]

NARRATIVE: CASE EVENT DATE: 20180417
